FAERS Safety Report 19031853 (Version 1)
Quarter: 2021Q1

REPORT INFORMATION
  Report Type: Spontaneous
  Country: US (occurrence: US)
  Receive Date: 20210319
  Receipt Date: 20210319
  Transmission Date: 20210420
  Serious: No
  Sender: FDA-Public Use
  Company Number: US-PFIZER INC-2021224060

PATIENT
  Age: 67 Year
  Sex: Female

DRUGS (1)
  1. EUCRISA [Suspect]
     Active Substance: CRISABOROLE
     Indication: PAIN IN EXTREMITY
     Dosage: UNK, 60G TUBE

REACTIONS (5)
  - Product use in unapproved indication [Unknown]
  - Peripheral swelling [Unknown]
  - Off label use [Unknown]
  - Burning sensation [Unknown]
  - Drug ineffective for unapproved indication [Unknown]
